FAERS Safety Report 12634450 (Version 1)
Quarter: 2016Q3

REPORT INFORMATION
  Report Type: Spontaneous
  Country: US (occurrence: US)
  Receive Date: 20160809
  Receipt Date: 20160809
  Transmission Date: 20161109
  Serious: No
  Sender: FDA-Public Use
  Company Number: US-INCYTE CORPORATION-2016IN001321

PATIENT
  Sex: Male

DRUGS (3)
  1. JAKAFI [Suspect]
     Active Substance: RUXOLITINIB
     Indication: MYELOFIBROSIS
     Dosage: 25 MG - TAKE 1 TABLET ONE TIME DAILY ON DAYS OF DIALYSIS, AFTER DIALYSIS, TAKE 5 DAYS PER WEEK
     Route: 048
     Dates: start: 20150819
  2. JAKAFI [Suspect]
     Active Substance: RUXOLITINIB
     Indication: MYELOFIBROSIS
     Dosage: 10 MG - TAKE 1 TABLET ONE TIME DAILY ON NON-DIALYSIS DAYS. TAKE 2 DAYS PER WEEK
     Route: 048
     Dates: start: 20150819
  3. HYDROCODONE [Concomitant]
     Active Substance: HYDROCODONE
     Indication: PRODUCT USED FOR UNKNOWN INDICATION
     Dosage: UNK

REACTIONS (5)
  - Bone pain [Unknown]
  - Skin discolouration [Unknown]
  - Constipation [Unknown]
  - Flatulence [Unknown]
  - Dialysis [Unknown]
